FAERS Safety Report 8422813-1 (Version None)
Quarter: 2012Q2

REPORT INFORMATION
  Report Type: 
  Country: None (occurrence: None)
  Receive Date: 20120608
  Receipt Date: 20120605
  Transmission Date: 20120825
  Serious: Yes (Disabling, Other)
  Sender: FDA-Public Use
  Company Number: US-MERCK-1201USA02900

PATIENT
  Age: 39 Year
  Sex: Female

DRUGS (3)
  1. FOSAMAX [Suspect]
     Route: 048
     Dates: start: 20081121, end: 20091221
  2. FOSAMAX [Suspect]
     Indication: OSTEOPENIA
     Route: 048
     Dates: start: 20030101, end: 20080101
  3. FOSAMAX [Suspect]
     Route: 048

REACTIONS (16)
  - NEUROMA [None]
  - PAIN IN EXTREMITY [None]
  - FEMUR FRACTURE [None]
  - TIBIA FRACTURE [None]
  - ANXIETY [None]
  - FOOT FRACTURE [None]
  - ANOGENITAL WARTS [None]
  - LOW TURNOVER OSTEOPATHY [None]
  - BURSITIS [None]
  - HERPES VIRUS INFECTION [None]
  - PAPILLOMA VIRAL INFECTION [None]
  - QUALITY OF LIFE DECREASED [None]
  - MUSCLE STRAIN [None]
  - DEPRESSION [None]
  - TENDON DISORDER [None]
  - TENDONITIS [None]
